FAERS Safety Report 10229372 (Version 2)
Quarter: 2015Q1

REPORT INFORMATION
  Report Type: Spontaneous
  Country: IE (occurrence: FR)
  Receive Date: 20140611
  Receipt Date: 20140611
  Transmission Date: 20150720
  Serious: Yes (Hospitalization)
  Sender: FDA-Public Use
  Company Number: 2014SP003180

PATIENT
  Age: 87 Year
  Sex: Male

DRUGS (28)
  1. GINKGO BILOBA EXTRACT [Suspect]
     Active Substance: GINKGO
     Indication: COGNITIVE DISORDER
     Route: 048
     Dates: end: 20121003
  2. TRANEXAMIC ACID. [Suspect]
     Active Substance: TRANEXAMIC ACID
     Indication: HAEMORRHAGE PROPHYLAXIS
     Route: 042
     Dates: start: 20121003, end: 20121003
  3. OMEPRAZOLE. [Concomitant]
     Active Substance: OMEPRAZOLE
     Dates: start: 20121003, end: 20121003
  4. HEPARIN SODIUM. [Suspect]
     Active Substance: HEPARIN SODIUM
     Indication: EXTRACORPOREAL CIRCULATION
     Route: 040
     Dates: start: 20121003
  5. HEPARIN SODIUM. [Suspect]
     Active Substance: HEPARIN SODIUM
     Indication: EXTRACORPOREAL CIRCULATION
     Route: 042
     Dates: start: 20121003
  6. HYDROXYZINE HYDROCHLORIDE. [Suspect]
     Active Substance: HYDROXYZINE HYDROCHLORIDE
     Indication: ANXIETY
     Route: 048
     Dates: start: 20121002, end: 20121003
  7. PROPOFOL. [Suspect]
     Active Substance: PROPOFOL
     Indication: ANAESTHESIA
     Route: 042
     Dates: start: 20121003, end: 20121003
  8. CORDARONE [Concomitant]
     Active Substance: AMIODARONE HYDROCHLORIDE
  9. FLUINDIONE [Concomitant]
     Active Substance: FLUINDIONE
     Dates: end: 20120925
  10. PROTAMINE SULPHATE [Suspect]
     Active Substance: PROTAMINE SULFATE
     Indication: PRODUCT USED FOR UNKNOWN INDICATION
     Route: 042
     Dates: start: 20121003, end: 20121003
  11. AVODART [Concomitant]
     Active Substance: DUTASTERIDE
     Dates: end: 20121001
  12. CLINDAMYCIN PALMITATE HYDROCHLORIDE. [Concomitant]
     Active Substance: CLINDAMYCIN PALMITATE HYDROCHLORIDE
     Dates: end: 20121001
  13. EPHEDRINE RENAUDIN [Concomitant]
     Active Substance: EPHEDRINE HYDROCHLORIDE
     Dates: start: 20121003
  14. CISATRACURIUM BESILATE [Suspect]
     Active Substance: CISATRACURIUM BESYLATE
     Indication: ANAESTHESIA
     Route: 042
     Dates: start: 20121003, end: 20121003
  15. ETOMIDATE. [Suspect]
     Active Substance: ETOMIDATE
     Indication: ANAESTHESIA
     Route: 042
     Dates: start: 20121003, end: 20121003
  16. CRESTOR [Concomitant]
     Active Substance: ROSUVASTATIN CALCIUM
     Indication: DYSLIPIDAEMIA
  17. STILNOX [Concomitant]
     Active Substance: ZOLPIDEM TARTRATE
     Indication: INSOMNIA
  18. CLINDAMYCIN PHOSPHATE. [Concomitant]
     Active Substance: CLINDAMYCIN PHOSPHATE
     Dates: end: 20121001
  19. HEMOSTATIC [Concomitant]
  20. VANCOMYCIN [Suspect]
     Active Substance: VANCOMYCIN
     Indication: PRODUCT USED FOR UNKNOWN INDICATION
     Route: 042
     Dates: start: 20121003, end: 20121003
  21. ACETYLSALICYLATE LYSINE [Suspect]
     Active Substance: ASPIRIN DL-LYSINE
     Indication: CARDIOVASCULAR EVENT PROPHYLAXIS
  22. KETAMINE [Suspect]
     Active Substance: KETAMINE
     Indication: ANAESTHESIA
     Route: 042
     Dates: start: 20121003, end: 20121003
  23. SUFENTANIL [Suspect]
     Active Substance: SUFENTANIL
     Indication: ANAESTHESIA
     Route: 042
     Dates: start: 20121003, end: 20121003
  24. ESOMEPRAZOLE [Concomitant]
     Active Substance: ESOMEPRAZOLE
     Indication: GASTRODUODENAL ULCER
     Dates: start: 20121003
  25. LERCANIDIPINE HYDROCHLORIDE [Concomitant]
     Active Substance: LERCANIDIPINE HYDROCHLORIDE
  26. NOREPINEPHRINE [Concomitant]
     Active Substance: NOREPINEPHRINE\NOREPINEPHRINE BITARTRATE
     Dates: start: 20121003
  27. ACETYLSALICYLATE LYSINE [Suspect]
     Active Substance: ASPIRIN DL-LYSINE
     Indication: CARDIOVASCULAR EVENT PROPHYLAXIS
     Route: 048
  28. CLINDAMYCIN HYDROCHLORIDE. [Concomitant]
     Active Substance: CLINDAMYCIN HYDROCHLORIDE
     Dates: end: 20121001

REACTIONS (2)
  - Haemorrhage [Recovered/Resolved]
  - Post procedural haemorrhage [Recovered/Resolved]

NARRATIVE: CASE EVENT DATE: 20121003
